FAERS Safety Report 8797010 (Version 1)
Quarter: 2012Q4

REPORT INFORMATION
  Report Type: 
  Country: VE (occurrence: VE)
  Receive Date: 20120920
  Receipt Date: 20120920
  Transmission Date: 20130627
  Serious: Yes (Other)
  Sender: FDA-Public Use
  Company Number: PHHY2012VE081190

PATIENT
  Age: 86 Year
  Sex: Female

DRUGS (5)
  1. ACLASTA [Suspect]
     Indication: OSTEOPOROSIS
     Dosage: 5 mg, UNK
     Route: 042
     Dates: start: 201011
  2. ACLASTA [Suspect]
     Dosage: 5 mg, UNK
     Route: 042
     Dates: start: 20120127
  3. CONCOR [Concomitant]
     Indication: CARDIAC DISORDER
     Dosage: 1 DF, QD
     Route: 048
  4. LEXAPRO [Concomitant]
     Dosage: 1 DF, QD
     Route: 048
  5. NIMOTOP [Concomitant]
     Dosage: 1 DF, QD
     Route: 048

REACTIONS (3)
  - Fall [Recovering/Resolving]
  - Skeletal injury [Recovering/Resolving]
  - Limb injury [Recovering/Resolving]
